FAERS Safety Report 8118579-5 (Version None)
Quarter: 2012Q1

REPORT INFORMATION
  Report Type: 
  Country: None (occurrence: None)
  Receive Date: 20120207
  Receipt Date: 20120203
  Transmission Date: 20120608
  Serious: No
  Sender: FDA-Public Use
  Company Number: US-PFIZER INC-2012030857

PATIENT
  Sex: Female
  Weight: 68.027 kg

DRUGS (13)
  1. TRAMADOL [Concomitant]
     Dosage: UNK
  2. GEODON [Suspect]
     Dosage: 20 MG, 2X/DAY
     Route: 048
     Dates: start: 20110101, end: 20110101
  3. EFFEXOR [Suspect]
     Indication: BIPOLAR DISORDER
     Dosage: 150 MG, 2X/DAY
  4. EFFEXOR [Suspect]
     Dosage: UNK
  5. NEXIUM [Concomitant]
     Dosage: UNK, AS NEEDED
  6. RITALIN [Concomitant]
     Dosage: UNK, 1X/DAY
  7. GEODON [Suspect]
     Indication: BIPOLAR DISORDER
     Dosage: 20 MG, 1X/DAY
     Route: 048
     Dates: start: 20111101, end: 20110101
  8. GEODON [Suspect]
     Dosage: 20 MG, 4X/DAY
     Route: 048
     Dates: start: 20110101, end: 20110101
  9. GEODON [Suspect]
     Dosage: 40 MG, 2X/DAY
     Route: 048
     Dates: start: 20110101, end: 20120101
  10. BUSPAR [Concomitant]
     Dosage: UNK
  11. GEODON [Suspect]
     Dosage: 20 MG, 3X/DAY
     Route: 048
     Dates: start: 20110101, end: 20110101
  12. CLONAZEPAM [Concomitant]
     Dosage: UNK, 2X/DAY
  13. VISTARIL [Concomitant]
     Dosage: UNK

REACTIONS (1)
  - ALOPECIA [None]
